FAERS Safety Report 15371655 (Version 1)
Quarter: 2018Q3

REPORT INFORMATION
  Report Type: Spontaneous
  Country: US (occurrence: US)
  Receive Date: 20180911
  Receipt Date: 20180911
  Transmission Date: 20181010
  Serious: Yes (Life-Threatening, Hospitalization)
  Sender: FDA-Public Use
  Company Number: US-CARDINAL HEALTH 414-CAHLYMPH-AE-18-56

PATIENT
  Age: 47 Year
  Sex: Female

DRUGS (2)
  1. LYMPHAZURIN [Suspect]
     Active Substance: ISOSULFAN BLUE
     Dates: start: 20180822, end: 20180822
  2. LYMPHOSEEK [Suspect]
     Active Substance: TECHNETIUM TC-99M TILMANOCEPT
     Indication: LYMPHATIC MAPPING
     Route: 065
     Dates: start: 20180822, end: 20180822

REACTIONS (1)
  - Anaphylactic reaction [Unknown]

NARRATIVE: CASE EVENT DATE: 20180822
